FAERS Safety Report 5018362-3 (Version None)
Quarter: 2006Q2

REPORT INFORMATION
  Report Type: 
  Country: None (occurrence: None)
  Receive Date: 20060530
  Receipt Date: 20060510
  Transmission Date: 20061013
  Serious: Yes (Hospitalization, Other)
  Sender: FDA-Public Use
  Company Number: 2006064071

PATIENT
  Sex: Male

DRUGS (13)
  1. LYRICA [Suspect]
     Indication: DIABETIC NEUROPATHY
     Dosage: 600 MG (200 MG, 3 IN D)
     Dates: end: 20060101
  2. LASIX [Concomitant]
  3. ATENOLOL [Concomitant]
  4. LISINOPRIL [Concomitant]
  5. PAXIL [Concomitant]
  6. WELLBURTIN (BUPROPION  HYDROCHLORIDE) [Concomitant]
  7. GLIPIZIDE [Concomitant]
  8. SPIRIVA [Concomitant]
  9. ASPIRIN [Concomitant]
  10. MAXZIDE [Concomitant]
  11. COLCHICUM JTL LIQ [Concomitant]
  12. NORVASC [Concomitant]
  13. ANTIDEPRESSANTS (ANTIDEPRESSANTS) [Concomitant]

REACTIONS (12)
  - CELLULITIS [None]
  - DRY MOUTH [None]
  - IMPAIRED WORK ABILITY [None]
  - ISCHAEMIC ULCER [None]
  - LETHARGY [None]
  - LOCALISED OEDEMA [None]
  - OEDEMA [None]
  - OEDEMA PERIPHERAL [None]
  - SCROTAL OEDEMA [None]
  - SOMNOLENCE [None]
  - TREATMENT NONCOMPLIANCE [None]
  - WEIGHT INCREASED [None]
